FAERS Safety Report 9439316 (Version 1)
Quarter: 2013Q3

REPORT INFORMATION
  Report Type: Spontaneous
  Country: US (occurrence: US)
  Receive Date: 20130804
  Receipt Date: 20130804
  Transmission Date: 20140515
  Serious: No
  Sender: FDA-Public Use
  Company Number: US-009507513-1307USA008440

PATIENT
  Sex: Female

DRUGS (1)
  1. SAPHRIS [Suspect]
     Dosage: UNK
     Dates: start: 2010

REACTIONS (7)
  - Feeling drunk [Unknown]
  - Depression [Recovered/Resolved]
  - Product taste abnormal [Unknown]
  - Hypoaesthesia oral [Unknown]
  - Drooling [Unknown]
  - Aphagia [Unknown]
  - Tremor [Not Recovered/Not Resolved]
